FAERS Safety Report 7175596-X (Version None)
Quarter: 2010Q4

REPORT INFORMATION
  Report Type: 
  Country: None (occurrence: None)
  Receive Date: 20101220
  Receipt Date: 20100323
  Transmission Date: 20110411
  Serious: No
  Sender: FDA-Public Use
  Company Number: US-AMGEN-TCS401438

PATIENT

DRUGS (4)
  1. ENBREL [Suspect]
     Indication: PSORIASIS
     Dosage: 50 MG, 2 TIMES/WK
     Dates: start: 20100202
  2. HYDROCHLOROTHIAZIDE [Concomitant]
     Dosage: UNK UNK, UNK
  3. YAZ [Concomitant]
     Dosage: UNK UNK, UNK
     Dates: start: 20100101
  4. UNSPECIFIED CONTRACEPTIVE [Concomitant]

REACTIONS (3)
  - HORMONE LEVEL ABNORMAL [None]
  - OEDEMA [None]
  - OEDEMA PERIPHERAL [None]
